FAERS Safety Report 8872872 (Version 1)
Quarter: 2012Q4

REPORT INFORMATION
  Report Type: 
  Country: US (occurrence: US)
  Receive Date: 20121026
  Receipt Date: 20121026
  Transmission Date: 20130627
  Serious: No
  Sender: FDA-Public Use
  Company Number: US-B.I. PHARMACEUTICALS,INC./RIDGEFIELD-2012-BP-26445BP

PATIENT
  Sex: Male

DRUGS (1)
  1. TRADJENTA [Suspect]
     Indication: DIABETES MELLITUS
     Dosage: 5 mg
     Route: 048
     Dates: start: 201207, end: 201209

REACTIONS (1)
  - Drug ineffective [Recovered/Resolved]
